FAERS Safety Report 5622609-X (Version None)
Quarter: 2008Q1

REPORT INFORMATION
  Report Type: 
  Country: None (occurrence: None)
  Receive Date: 20080211
  Receipt Date: 20080211
  Transmission Date: 20080703
  Serious: Yes (Hospitalization)
  Sender: FDA-Public Use
  Company Number: None

PATIENT
  Age: 67 Year
  Sex: Male

DRUGS (2)
  1. CISPLATIN [Suspect]
     Dosage: 190MG  OTHER  IV
     Route: 042
     Dates: start: 20071007, end: 20071105
  2. GEMCITABINE [Suspect]
     Dosage: 240MG  IV
     Route: 042
     Dates: start: 20071007, end: 20071105

REACTIONS (1)
  - RENAL FAILURE ACUTE [None]
